FAERS Safety Report 5969156-3 (Version None)
Quarter: 2008Q4

REPORT INFORMATION
  Report Type: 
  Country: None (occurrence: None)
  Receive Date: 20081126
  Receipt Date: 20081117
  Transmission Date: 20090506
  Serious: Yes (Other)
  Sender: FDA-Public Use
  Company Number: TN-WATSON-2008-06858

PATIENT
  Age: 81 Year
  Sex: Female

DRUGS (1)
  1. LIDOCAINE HCL W/ EPINEPHRINE [Suspect]
     Indication: LOCAL ANAESTHESIA
     Dosage: 2 ML, SINGLE
     Route: 031
     Dates: start: 20070501

REACTIONS (3)
  - BLINDNESS [None]
  - NECROSIS ISCHAEMIC [None]
  - RETINAL ISCHAEMIA [None]
